FAERS Safety Report 4368914-9 (Version None)
Quarter: 2004Q2

REPORT INFORMATION
  Report Type: 
  Country: None (occurrence: None)
  Receive Date: 20040525
  Receipt Date: 20040512
  Transmission Date: 20050107
  Serious: Yes (Other)
  Sender: FDA-Public Use
  Company Number: 2004031990

PATIENT
  Sex: Male
  Weight: 91.6266 kg

DRUGS (6)
  1. VIAGRA [Suspect]
     Indication: ERECTILE DYSFUNCTION
     Dosage: (25 MG, AS NEEDED), ORAL
     Route: 048
     Dates: start: 20000101
  2. CELECOXIB (CELECOXIB) [Concomitant]
  3. SIMVASTATIN [Concomitant]
  4. SOTALOL HCL [Concomitant]
  5. FELODIPINE [Concomitant]
  6. WARFARIN SODIUM [Concomitant]

REACTIONS (2)
  - DRUG INEFFECTIVE [None]
  - PROSTATE CANCER [None]
